FAERS Safety Report 4433342-4 (Version None)
Quarter: 2004Q3

REPORT INFORMATION
  Report Type: 
  Country: None (occurrence: None)
  Receive Date: 20040824
  Receipt Date: 20040809
  Transmission Date: 20050211
  Serious: Yes (Other)
  Sender: FDA-Public Use
  Company Number: 2003-BP-00896BP

PATIENT
  Age: 27 Year
  Sex: Female
  Weight: 23.8592 kg

DRUGS (6)
  1. VIRAMUNE [Suspect]
     Indication: HIV INFECTION
     Dosage: 400 MG (200 MG, 2 IN 1 D), PO
     Route: 048
     Dates: start: 20021029
  2. COMBIVIR [Suspect]
     Indication: HIV INFECTION
     Dosage: 900 MG (450 MG,2  IN 1 D), PO
     Route: 048
     Dates: start: 20021029
  3. PRENATAL VITAMINS [Concomitant]
  4. FERROUS SULFATE TAB [Concomitant]
  5. FOLIC ACID [Concomitant]
  6. IRON SUPPLEMENT [Concomitant]

REACTIONS (7)
  - ALANINE AMINOTRANSFERASE INCREASED [None]
  - CHORIOAMNIONITIS [None]
  - DRUG EXPOSURE DURING PREGNANCY [None]
  - INTRA-UTERINE DEATH [None]
  - OTITIS MEDIA ACUTE [None]
  - PLACENTAL DISORDER [None]
  - STILLBIRTH [None]
